FAERS Safety Report 13403464 (Version 3)
Quarter: 2017Q2

REPORT INFORMATION
  Report Type: Spontaneous
  Country: US (occurrence: US)
  Receive Date: 20170404
  Receipt Date: 20170505
  Transmission Date: 20170830
  Serious: Yes (Hospitalization)
  Sender: FDA-Public Use
  Company Number: US-VERTEX PHARMACEUTICALS-2017-001848

PATIENT
  Sex: Male

DRUGS (3)
  1. CAYSTON [Concomitant]
     Active Substance: AZTREONAM
     Dosage: 75 MG, TID
  2. PULMOZYME [Concomitant]
     Active Substance: DORNASE ALFA
     Dosage: 400 MG, BID
     Route: 048
     Dates: start: 201703
  3. ORKAMBI [Suspect]
     Active Substance: IVACAFTOR\LUMACAFTOR
     Indication: CYSTIC FIBROSIS
     Dosage: 2 DF (200-125 MG), BID
     Route: 048
     Dates: start: 201703

REACTIONS (3)
  - Blood pressure increased [Unknown]
  - Renal function test abnormal [Unknown]
  - Infection [Unknown]
